FAERS Safety Report 7608391-5 (Version None)
Quarter: 2011Q3

REPORT INFORMATION
  Report Type: 
  Country: None (occurrence: None)
  Receive Date: 20110714
  Receipt Date: 20100730
  Transmission Date: 20111222
  Serious: No
  Sender: FDA-Public Use
  Company Number: US-TYCO HEALTHCARE/MALLINCKRODT-T201001763

PATIENT
  Sex: Female

DRUGS (2)
  1. MORPHINE [Suspect]
     Dosage: UNK
  2. IMITREX [Concomitant]
     Indication: MIGRAINE
     Dosage: UNK

REACTIONS (3)
  - ABDOMINAL PAIN [None]
  - MIGRAINE [None]
  - NAUSEA [None]
